FAERS Safety Report 11913210 (Version 2)
Quarter: 2016Q1

REPORT INFORMATION
  Report Type: Report from Study
  Country: DE (occurrence: DE)
  Receive Date: 20160113
  Receipt Date: 20160303
  Transmission Date: 20160526
  Serious: Yes (Other)
  Sender: FDA-Public Use
  Company Number: DE-BEH-2016057669

PATIENT
  Age: 77 Year
  Sex: Male
  Weight: 92 kg

DRUGS (40)
  1. ENALAPRIL [Concomitant]
     Active Substance: ENALAPRIL
     Indication: HYPERTENSION
     Route: 048
  2. ALLOPURINOL. [Concomitant]
     Active Substance: ALLOPURINOL
     Indication: CHRONIC LYMPHOCYTIC LEUKAEMIA
     Route: 048
  3. ANTINEOPLASTIC AGENTS [Concomitant]
     Active Substance: UNSPECIFIED INGREDIENT
     Dates: start: 20150128, end: 20151027
  4. PREDNISOLONE. [Concomitant]
     Active Substance: PREDNISOLONE
     Dates: start: 20150907, end: 20150907
  5. PREDNISOLONE. [Concomitant]
     Active Substance: PREDNISOLONE
     Dates: start: 20150929, end: 20150929
  6. PREDNISOLONE. [Concomitant]
     Active Substance: PREDNISOLONE
     Dates: start: 20151027, end: 20151027
  7. FENISTIL [Concomitant]
     Active Substance: DIMETHINDENE
     Dosage: 1 VIAL
     Dates: start: 20151027, end: 20151027
  8. PRIVIGEN [Suspect]
     Active Substance: HUMAN IMMUNOGLOBULIN G
     Dosage: INFUSION RATE 0.25 - 1.33 ML/MIN
     Route: 042
     Dates: start: 20150102, end: 20150102
  9. PRIVIGEN [Suspect]
     Active Substance: HUMAN IMMUNOGLOBULIN G
     Indication: CHRONIC LYMPHOCYTIC LEUKAEMIA
     Dosage: INFUSION RATE 0.25 - 1.33 ML/MIN
     Route: 042
     Dates: start: 20150311, end: 20150311
  10. PREDNISOLONE. [Concomitant]
     Active Substance: PREDNISOLONE
     Dates: start: 20151124, end: 20151124
  11. PRIVIGEN [Suspect]
     Active Substance: HUMAN IMMUNOGLOBULIN G
     Indication: IMMUNODEFICIENCY
     Dosage: SOLUTION STRENGTH 10%; INFUSION RATE 0.25 - 1.33 ML/MIN
     Route: 042
     Dates: start: 20141211, end: 20141211
  12. PRIVIGEN [Suspect]
     Active Substance: HUMAN IMMUNOGLOBULIN G
     Dosage: INFUSION RATE 0.25 - 1.33 ML/MIN
     Route: 042
     Dates: start: 20150408, end: 20150408
  13. PREDNISOLONE. [Concomitant]
     Active Substance: PREDNISOLONE
     Indication: PREMEDICATION
     Dates: start: 20150311, end: 20150311
  14. PREDNISOLONE. [Concomitant]
     Active Substance: PREDNISOLONE
     Dates: start: 20150211, end: 20150211
  15. FENISTIL [Concomitant]
     Active Substance: DIMETHINDENE
     Dosage: 1 VIAL
     Dates: start: 20150102, end: 20150102
  16. FENISTIL [Concomitant]
     Active Substance: DIMETHINDENE
     Dosage: 1 VIAL
     Dates: start: 20150122, end: 20150122
  17. FENISTIL [Concomitant]
     Active Substance: DIMETHINDENE
     Dosage: 1 VIAL
     Dates: start: 20150211, end: 20150211
  18. FENISTIL [Concomitant]
     Active Substance: DIMETHINDENE
     Dosage: 1 VIAL
     Dates: start: 20150311, end: 20150311
  19. FENISTIL [Concomitant]
     Active Substance: DIMETHINDENE
     Dosage: 1 VIAL
     Dates: start: 20150907, end: 20150907
  20. FENISTIL [Concomitant]
     Active Substance: DIMETHINDENE
     Dosage: 1 VIAL
     Dates: start: 20151124, end: 20151124
  21. RITUXIMAB [Concomitant]
     Active Substance: RITUXIMAB
     Dates: start: 20150128, end: 20150804
  22. ANTINEOPLASTIC AGENTS [Concomitant]
     Active Substance: UNSPECIFIED INGREDIENT
     Dates: start: 20151124
  23. MOXONIDIN [Concomitant]
     Active Substance: MOXONIDINE
     Indication: HYPERTENSION
     Route: 048
  24. PANTOZOL [Concomitant]
     Active Substance: PANTOPRAZOLE SODIUM
     Indication: PROPHYLAXIS
     Route: 048
  25. PREDNISOLONE. [Concomitant]
     Active Substance: PREDNISOLONE
     Dates: start: 20150505, end: 20150505
  26. FENISTIL [Concomitant]
     Active Substance: DIMETHINDENE
     Indication: PREMEDICATION
     Dosage: 1 VIAL
     Dates: start: 20150404, end: 20150404
  27. FENISTIL [Concomitant]
     Active Substance: DIMETHINDENE
     Dosage: 1 VIAL
     Dates: start: 20150505, end: 20150505
  28. PRIVIGEN [Suspect]
     Active Substance: HUMAN IMMUNOGLOBULIN G
     Dosage: INFUSION RATE 0.25 - 1.33 ML/MIN
     Route: 042
     Dates: start: 20150211, end: 20150211
  29. PRIVIGEN [Suspect]
     Active Substance: HUMAN IMMUNOGLOBULIN G
     Dosage: INFUSION RATE 0.25 - 1.33 ML/MIN
     Route: 042
     Dates: start: 20150506, end: 20150506
  30. PRIVIGEN [Suspect]
     Active Substance: HUMAN IMMUNOGLOBULIN G
     Dosage: INFUSION RATE 0.25 - 1.33 ML/MIN
     Route: 042
     Dates: start: 20150907, end: 20150907
  31. PRIVIGEN [Suspect]
     Active Substance: HUMAN IMMUNOGLOBULIN G
     Dosage: INFUSION RATE 0.25 - 1.33 ML/MIN
     Route: 042
     Dates: start: 20151027, end: 20151027
  32. REMERGIL [Concomitant]
     Active Substance: MIRTAZAPINE
     Indication: DEPRESSION
     Route: 048
  33. PRIVIGEN [Suspect]
     Active Substance: HUMAN IMMUNOGLOBULIN G
     Dosage: INFUSION RATE 0.25 - 1.33 ML/MIN
     Route: 042
     Dates: start: 20150122, end: 20150122
  34. PRIVIGEN [Suspect]
     Active Substance: HUMAN IMMUNOGLOBULIN G
     Dosage: INFUSION RATE 0.25 - 1.33 ML/MIN
     Route: 042
     Dates: start: 20150929, end: 20150929
  35. PRIVIGEN [Suspect]
     Active Substance: HUMAN IMMUNOGLOBULIN G
     Dosage: INFUSION RATE 0.25 - 1.33 ML/MIN
     Route: 042
     Dates: start: 20151124, end: 20151124
  36. PREDNISOLONE. [Concomitant]
     Active Substance: PREDNISOLONE
     Dates: start: 20150122, end: 20150122
  37. PREDNISOLONE. [Concomitant]
     Active Substance: PREDNISOLONE
     Dates: start: 20150404, end: 20150404
  38. FENISTIL [Concomitant]
     Active Substance: DIMETHINDENE
     Dosage: 1 VIAL
     Dates: start: 20150929, end: 20150929
  39. PREDNISOLUT [Concomitant]
     Active Substance: PREDNISOLONE
     Indication: PREMEDICATION
     Dates: start: 20150102, end: 20150102
  40. COTRIM D.S. [Concomitant]
     Active Substance: SULFAMETHOXAZOLE\TRIMETHOPRIM
     Dates: start: 20150811

REACTIONS (6)
  - Enteritis [Recovered/Resolved]
  - Escherichia infection [Not Recovered/Not Resolved]
  - Chills [Recovered/Resolved]
  - Upper respiratory tract infection [Recovered/Resolved]
  - Upper respiratory tract infection [Recovered/Resolved]
  - Upper respiratory tract infection [Recovered/Resolved]

NARRATIVE: CASE EVENT DATE: 20141211
